FAERS Safety Report 11129255 (Version 5)
Quarter: 2015Q4

REPORT INFORMATION
  Report Type: Spontaneous
  Country: US (occurrence: US)
  Receive Date: 20150521
  Receipt Date: 20151102
  Transmission Date: 20160304
  Serious: No
  Sender: FDA-Public Use
  Company Number: US-PFIZER INC-2015168465

PATIENT
  Age: 85 Year
  Sex: Male
  Weight: 75 kg

DRUGS (11)
  1. PREDNISONE. [Suspect]
     Active Substance: PREDNISONE
     Indication: PRODUCT USED FOR UNKNOWN INDICATION
     Dosage: 7.5 MG, 2X/DAY
  2. MYRBETRIQ [Concomitant]
     Active Substance: MIRABEGRON
     Dosage: UNK
  3. EFFEXOR [Suspect]
     Active Substance: VENLAFAXINE HYDROCHLORIDE
     Indication: HOT FLUSH
     Dosage: 37.5 MG, 2X/DAY
  4. EFFEXOR [Suspect]
     Active Substance: VENLAFAXINE HYDROCHLORIDE
     Indication: DEPRESSION
  5. ZYTIGA [Suspect]
     Active Substance: ABIRATERONE ACETATE
     Dosage: 4 DF, 1X/DAY
     Dates: start: 201505
  6. XTANDI [Suspect]
     Active Substance: ENZALUTAMIDE
     Indication: PROSTATE CANCER
     Dosage: 4 DF, 1X/DAY
     Route: 048
     Dates: end: 201504
  7. LUPRON [Suspect]
     Active Substance: LEUPROLIDE ACETATE
     Dosage: UNK
     Route: 042
  8. ZYTIGA [Suspect]
     Active Substance: ABIRATERONE ACETATE
     Indication: PROSTATE CANCER
     Dosage: 250 MG, 4X/DAY
     Dates: start: 201505
  9. XTANDI [Suspect]
     Active Substance: ENZALUTAMIDE
     Dosage: 4 UNK, UNK (160 MG)
     Route: 048
     Dates: start: 201305, end: 201505
  10. LUPRON [Suspect]
     Active Substance: LEUPROLIDE ACETATE
     Indication: PROSTATE CANCER
     Dosage: UNK, EVERY 3 MONTHS
  11. WARFARIN [Concomitant]
     Active Substance: WARFARIN

REACTIONS (5)
  - Hot flush [Not Recovered/Not Resolved]
  - Fatigue [Not Recovered/Not Resolved]
  - Product use issue [Unknown]
  - Pain in extremity [Unknown]
  - Pain [Unknown]
